FAERS Safety Report 4802375-8 (Version None)
Quarter: 2005Q4

REPORT INFORMATION
  Report Type: 
  Country: None (occurrence: None)
  Receive Date: 20051012
  Receipt Date: 20051005
  Transmission Date: 20060501
  Serious: No
  Sender: FDA-Public Use
  Company Number: 2005-133292-NL

PATIENT
  Age: 60 Year
  Sex: Female

DRUGS (26)
  1. MIRTAZAPINE [Suspect]
     Dosage: 15 MG/7.5 MG
     Route: 048
     Dates: start: 20030903, end: 20030908
  2. MIRTAZAPINE [Suspect]
     Dosage: 15 MG/7.5 MG
     Route: 048
     Dates: start: 20030909, end: 20030909
  3. CIPROFLOXACIN HYDROCHLORIDE [Suspect]
     Indication: BILIARY SEPSIS
     Dosage: 250 MG/500 MG
     Route: 048
     Dates: start: 20030906, end: 20030906
  4. CIPROFLOXACIN HYDROCHLORIDE [Suspect]
     Indication: BILIARY SEPSIS
     Dosage: 250 MG/500 MG
     Route: 048
     Dates: start: 20030907, end: 20030910
  5. LEVOTHYROXINE SODIUM [Concomitant]
  6. METOPROLOL TARTRATE [Concomitant]
  7. ENALAPRIL MALEATE [Concomitant]
  8. DIGITOXIN TAB [Concomitant]
  9. URSODEOXYCHOLIC ACID [Concomitant]
  10. PANTOPRAZOLE SODIUM [Concomitant]
  11. ISOPROMETHAZINE HYDROCHLORIDE [Concomitant]
  12. METRONIDAZOLE [Concomitant]
  13. MEZLOCILLIN SODIUM [Concomitant]
  14. POTASSIUM CHLORIDE [Concomitant]
  15. INSULIN [Concomitant]
  16. HEPARIN-FRACTION, SODIUM SALT [Concomitant]
  17. INSULIN HUMAN [Concomitant]
  18. ISOPHANE INSULIN [Concomitant]
  19. DIGITOXIN TAB [Concomitant]
  20. ENALAPRIL MALEATE [Concomitant]
  21. PEHNPROCOUMON [Concomitant]
  22. LEVOTHYROXINE SODIUM [Concomitant]
  23. URSODEOXYCHOLIC ACID [Concomitant]
  24. INSULIN HUMAN [Concomitant]
  25. BROTIZOLAM [Concomitant]
  26. HEPARIN SODIUM [Concomitant]

REACTIONS (1)
  - HEPATITIS ACUTE [None]
